FAERS Safety Report 25773578 (Version 1)
Quarter: 2025Q3

REPORT INFORMATION
  Report Type: Spontaneous
  Country: NZ (occurrence: NZ)
  Receive Date: 20250908
  Receipt Date: 20250908
  Transmission Date: 20251020
  Serious: Yes (Other)
  Sender: MYLAN
  Company Number: NZ-MYLANLABS-2025M1075616

PATIENT
  Age: 25 Year
  Sex: Male

DRUGS (1)
  1. CLOZARIL [Suspect]
     Active Substance: CLOZAPINE
     Indication: Schizophrenia

REACTIONS (5)
  - Eosinophilia [Recovering/Resolving]
  - Troponin increased [Unknown]
  - Anxiety disorder [Unknown]
  - Soft tissue infection [Unknown]
  - White blood cell count increased [Unknown]

NARRATIVE: CASE EVENT DATE: 20250801
